FAERS Safety Report 6074794-6 (Version None)
Quarter: 2009Q1

REPORT INFORMATION
  Report Type: 
  Country: None (occurrence: None)
  Receive Date: 20090210
  Receipt Date: 20090210
  Transmission Date: 20090719
  Serious: Yes (Other)
  Sender: FDA-Public Use
  Company Number: None

PATIENT
  Age: 52 Year
  Sex: Male
  Weight: 82 kg

DRUGS (1)
  1. PEGASYS [Suspect]
     Dosage: 180 MG WEEKLY
     Dates: start: 20080813, end: 20081003

REACTIONS (1)
  - PSYCHOTIC DISORDER [None]
